FAERS Safety Report 9227515 (Version 1)
Quarter: 2013Q2

REPORT INFORMATION
  Report Type: Spontaneous
  Country: US (occurrence: None)
  Receive Date: 20130411
  Receipt Date: 20130411
  Transmission Date: 20140414
  Serious: Yes (Hospitalization)
  Sender: FDA-Public Use
  Company Number: None

PATIENT
  Age: 36 Year
  Sex: Female
  Weight: 75.9 kg

DRUGS (1)
  1. DDAVP [Suspect]
     Indication: VON WILLEBRAND^S DISEASE
     Dosage: 23MCG ONCE X 3 DOSES IVPB?RECENT

REACTIONS (7)
  - Somnolence [None]
  - Headache [None]
  - Blood sodium decreased [None]
  - Convulsion [None]
  - Restlessness [None]
  - Aggression [None]
  - No therapeutic response [None]
